FAERS Safety Report 8059253-3 (Version None)
Quarter: 2012Q1

REPORT INFORMATION
  Report Type: 
  Country: None (occurrence: None)
  Receive Date: 20120113
  Receipt Date: 20111229
  Transmission Date: 20120608
  Serious: Yes (Death)
  Sender: FDA-Public Use
  Company Number: VISP-PR-1112L-0531

PATIENT
  Age: 49 Year
  Sex: Female

DRUGS (1)
  1. VISIPAQUE [Suspect]
     Indication: SICKLE CELL ANAEMIA
     Dosage: 100 ML, INTRAVENOUS
     Route: 042
     Dates: start: 20000101, end: 20060630

REACTIONS (3)
  - CARDIOGENIC SHOCK [None]
  - MYOCARDIAL INFARCTION [None]
  - DISEASE PROGRESSION [None]
